FAERS Safety Report 14108550 (Version 2)
Quarter: 2017Q4

REPORT INFORMATION
  Report Type: Spontaneous
  Country: US (occurrence: US)
  Receive Date: 20171019
  Receipt Date: 20171206
  Transmission Date: 20180321
  Serious: No
  Sender: FDA-Public Use
  Company Number: US-PFIZER INC-2017447730

PATIENT
  Age: 77 Year
  Sex: Male
  Weight: 99 kg

DRUGS (6)
  1. MELATONIN [Concomitant]
     Active Substance: MELATONIN
     Indication: SLEEP DISORDER
     Dosage: 5 MG, UNK (TAKES IT FOR 90 DAYS AND THEN STOPS FOR A WEEK)
  2. ADVIL [Suspect]
     Active Substance: IBUPROFEN
     Indication: ARTHRALGIA
     Dosage: 200 MG, AS NEEDED (2-3 TIMES A DAY)
     Route: 048
     Dates: start: 201603, end: 201606
  3. ADVIL [Suspect]
     Active Substance: IBUPROFEN
     Indication: PAIN
  4. ALEVE [Suspect]
     Active Substance: NAPROXEN SODIUM
     Indication: ARTHRALGIA
     Dosage: UNK
     Dates: start: 201603, end: 201606
  5. TYLENOL [Suspect]
     Active Substance: ACETAMINOPHEN
     Indication: NASOPHARYNGITIS
     Dosage: UNK
     Dates: end: 201606
  6. TYLENOL [Suspect]
     Active Substance: ACETAMINOPHEN
     Indication: RHINORRHOEA

REACTIONS (11)
  - Rash [Recovered/Resolved]
  - Drug hypersensitivity [Unknown]
  - Peripheral swelling [Recovered/Resolved]
  - Fear [Unknown]
  - Feeling abnormal [Unknown]
  - Skin exfoliation [Recovered/Resolved]
  - Sensory loss [Recovered/Resolved]
  - Insomnia [Recovered/Resolved]
  - Pain in extremity [Recovered/Resolved]
  - Photosensitivity reaction [Recovered/Resolved]
  - Skin sensitisation [Recovering/Resolving]

NARRATIVE: CASE EVENT DATE: 2016
